FAERS Safety Report 18513121 (Version 5)
Quarter: 2023Q2

REPORT INFORMATION
  Report Type: Report from Study
  Country: IT (occurrence: IT)
  Receive Date: 20201117
  Receipt Date: 20230412
  Transmission Date: 20230722
  Serious: Yes (Death, Hospitalization, Other)
  Sender: FDA-Public Use
  Company Number: IT-002147023-NVSC2020IT301328

PATIENT

DRUGS (10)
  1. RUXOLITINIB [Suspect]
     Active Substance: RUXOLITINIB
     Indication: Myelofibrosis
     Dosage: 10 MG, BID (20)
     Route: 048
     Dates: start: 20201022, end: 20201026
  2. RUXOLITINIB [Suspect]
     Active Substance: RUXOLITINIB
     Dosage: 5 UNK, DAILY
     Route: 048
     Dates: start: 20201106, end: 20201208
  3. RUXOLITINIB [Suspect]
     Active Substance: RUXOLITINIB
     Dosage: 10 UNK DAILY
     Route: 048
     Dates: start: 20201209, end: 20210110
  4. RUXOLITINIB [Suspect]
     Active Substance: RUXOLITINIB
     Dosage: 15 UNK, DAILY
     Route: 048
     Dates: start: 20210111, end: 20210115
  5. RUXOLITINIB [Suspect]
     Active Substance: RUXOLITINIB
     Dosage: 10 UNK, DAILY
     Route: 048
     Dates: start: 20210116
  6. RUXOLITINIB [Suspect]
     Active Substance: RUXOLITINIB
     Dosage: 5 MG, BID
     Route: 048
  7. RAMIPRIL [Concomitant]
     Active Substance: RAMIPRIL
     Indication: Product used for unknown indication
     Dosage: UNK
     Route: 065
  8. TICLOPIDINE [Concomitant]
     Active Substance: TICLOPIDINE
     Indication: Product used for unknown indication
     Dosage: 1 DF, QD
     Route: 065
  9. LANSOPRAZOLE [Concomitant]
     Active Substance: LANSOPRAZOLE
     Indication: Product used for unknown indication
     Dosage: 30 MG, QD
     Route: 065
  10. LASIX [Concomitant]
     Active Substance: FUROSEMIDE
     Indication: Product used for unknown indication
     Dosage: 25 MG
     Route: 065

REACTIONS (11)
  - Anaemia [Recovering/Resolving]
  - Back pain [Recovered/Resolved]
  - Cognitive disorder [Unknown]
  - Diarrhoea [Recovering/Resolving]
  - Disorientation [Recovered/Resolved]
  - Epistaxis [Unknown]
  - Confusional state [Recovered/Resolved]
  - Pleural effusion [Unknown]
  - Pneumonia [Fatal]
  - Sepsis [Fatal]
  - Chills [Recovered/Resolved]

NARRATIVE: CASE EVENT DATE: 20201027
